FAERS Safety Report 4284730-0 (Version None)
Quarter: 2004Q1

REPORT INFORMATION
  Report Type: 
  Country: None (occurrence: None)
  Receive Date: 20040130
  Receipt Date: 20040113
  Transmission Date: 20041129
  Serious: Yes (Hospitalization)
  Sender: FDA-Public Use
  Company Number: JP_030901799

PATIENT
  Age: 2 Day
  Sex: Male
  Weight: 4 kg

DRUGS (1)
  1. ZYPREXA [Suspect]

REACTIONS (7)
  - C-REACTIVE PROTEIN INCREASED [None]
  - MATERNAL DRUGS AFFECTING FOETUS [None]
  - NEONATAL DISORDER [None]
  - NEONATAL INFECTION [None]
  - RESPIRATORY DISORDER NEONATAL [None]
  - TACHYPNOEA [None]
  - UMBILICAL HERNIA [None]
